FAERS Safety Report 8613599-6 (Version None)
Quarter: 2012Q3

REPORT INFORMATION
  Report Type: 
  Country: None (occurrence: None)
  Receive Date: 20120823
  Receipt Date: 20120808
  Transmission Date: 20120928
  Serious: Yes (Hospitalization, Other)
  Sender: FDA-Public Use
  Company Number: US-MSD-2012SP036740

PATIENT

DRUGS (4)
  1. REBETOL [Suspect]
     Indication: HEPATITIS C
     Dosage: UNK
     Dates: start: 20060106, end: 20060623
  2. REBETOL [Suspect]
     Dosage: UNK
     Route: 048
     Dates: start: 20120706
  3. PEG-INTRON [Suspect]
     Indication: HEPATITIS C
     Dosage: UNK
     Dates: start: 20060106, end: 20060623
  4. PEG-INTRON [Suspect]
     Dosage: UNK
     Dates: start: 20120706

REACTIONS (11)
  - PAIN IN EXTREMITY [None]
  - INAPPROPRIATE SCHEDULE OF DRUG ADMINISTRATION [None]
  - ADRENAL NEOPLASM [None]
  - VARICOSE VEIN [None]
  - BUNION [None]
  - NO THERAPEUTIC RESPONSE [None]
  - CONFUSIONAL STATE [None]
  - DEPRESSION [None]
  - INSOMNIA [None]
  - NERVOUSNESS [None]
  - FATIGUE [None]
